FAERS Safety Report 7243082-4 (Version None)
Quarter: 2011Q1

REPORT INFORMATION
  Report Type: 
  Country: None (occurrence: None)
  Receive Date: 20110125
  Receipt Date: 20101123
  Transmission Date: 20110831
  Serious: No
  Sender: FDA-Public Use
  Company Number: US-AMGEN-USASP2010005407

PATIENT
  Age: 64 Year
  Sex: Female
  Weight: 78.005 kg

DRUGS (2)
  1. NEXIUM [Concomitant]
     Indication: DYSPEPSIA
     Dosage: 40 MG, BID
  2. PROLIA [Suspect]
     Indication: OSTEOPENIA
     Dosage: 60 MG, UNK
     Route: 058
     Dates: start: 20101008

REACTIONS (3)
  - DYSPEPSIA [None]
  - OESOPHAGEAL PAIN [None]
  - NAUSEA [None]
